FAERS Safety Report 12235117 (Version 4)
Quarter: 2016Q2

REPORT INFORMATION
  Report Type: Report from Study
  Country: GB (occurrence: GB)
  Receive Date: 20160404
  Receipt Date: 20160413
  Transmission Date: 20160815
  Serious: No
  Sender: FDA-Public Use
  Company Number: GB-JNJFOC-20160313227

PATIENT
  Sex: Male

DRUGS (1)
  1. STELARA [Suspect]
     Active Substance: USTEKINUMAB
     Indication: PSORIASIS
     Dosage: ON WEEK 0 AS DIRECTED, ON WEEK 4 AS DIRECTED
     Route: 058
     Dates: start: 20160304

REACTIONS (3)
  - Blood pressure increased [Unknown]
  - Dizziness [Not Recovered/Not Resolved]
  - Psoriasis [Unknown]
